FAERS Safety Report 7008760-0 (Version None)
Quarter: 2010Q3

REPORT INFORMATION
  Report Type: 
  Country: None (occurrence: None)
  Receive Date: 20100921
  Receipt Date: 20100907
  Transmission Date: 20110219
  Serious: Yes (Hospitalization)
  Sender: FDA-Public Use
  Company Number: A-CH2010-36568

PATIENT
  Age: 64 Year
  Sex: Female
  Weight: 43 kg

DRUGS (10)
  1. TRACLEER [Suspect]
     Indication: PULMONARY ARTERIAL HYPERTENSION
     Dosage: 125 MG, BID, ORAL; 62.5 MG, BID, ORAL
     Route: 048
     Dates: start: 20100329, end: 20100425
  2. TRACLEER [Suspect]
     Indication: PULMONARY ARTERIAL HYPERTENSION
     Dosage: 125 MG, BID, ORAL; 62.5 MG, BID, ORAL
     Route: 048
     Dates: start: 20100426, end: 20100513
  3. PREDNISOLONE [Concomitant]
  4. WARFARIN POTASSIUM (WARFARIN POTASSIUM) [Concomitant]
  5. BERAPROST SODIUM (BERAPROST SODIUM) [Concomitant]
  6. URSODIOL [Concomitant]
  7. ASPARTATE CALCIUM (ASPARTATE CALCIUM) [Concomitant]
  8. ALFACALCIDOL (ALFACALCIDOL) [Concomitant]
  9. REBAMIPIDE (REBAMIPIDE) [Concomitant]
  10. OXYGEN (OXYGEN) [Concomitant]

REACTIONS (6)
  - ALANINE AMINOTRANSFERASE INCREASED [None]
  - ASPARTATE AMINOTRANSFERASE INCREASED [None]
  - DECREASED APPETITE [None]
  - LIVER DISORDER [None]
  - MALAISE [None]
  - PYREXIA [None]
